FAERS Safety Report 6675097-9 (Version None)
Quarter: 2010Q2

REPORT INFORMATION
  Report Type: 
  Country: None (occurrence: None)
  Receive Date: 20100407
  Receipt Date: 20100323
  Transmission Date: 20101027
  Serious: Yes (Other)
  Sender: FDA-Public Use
  Company Number: AUR-APL-2010-00946

PATIENT
  Sex: Female

DRUGS (2)
  1. SIMVASTATIN [Suspect]
     Indication: PALPITATIONS
  2. RAMIPRIL [Suspect]

REACTIONS (5)
  - CHEST PAIN [None]
  - CONVULSION [None]
  - MYALGIA [None]
  - PANIC ATTACK [None]
  - SLEEP TERROR [None]
